FAERS Safety Report 6120297-X (Version None)
Quarter: 2009Q1

REPORT INFORMATION
  Report Type: 
  Country: None (occurrence: None)
  Receive Date: 20090312
  Receipt Date: 20090225
  Transmission Date: 20090719
  Serious: Yes (Other)
  Sender: FDA-Public Use
  Company Number: 2009S1003337

PATIENT
  Age: 15 Year
  Sex: Male

DRUGS (5)
  1. FLUOXETINE [Suspect]
     Indication: DEPRESSION
     Dosage: 20 MG;DAILY
     Dates: start: 20071116, end: 20080201
  2. CITALOPRAM HYDROBROMIDE [Concomitant]
  3. ERYTHROMYCIN [Concomitant]
  4. ROACCUTANE [Concomitant]
  5. CANNABIS [Concomitant]

REACTIONS (8)
  - AGGRESSION [None]
  - DISINHIBITION [None]
  - DISSOCIATION [None]
  - DREAMY STATE [None]
  - DRUG DOSE OMISSION [None]
  - HALLUCINATION, AUDITORY [None]
  - HOMICIDE [None]
  - TREATMENT NONCOMPLIANCE [None]
